FAERS Safety Report 10077864 (Version 2)
Quarter: 2014Q2

REPORT INFORMATION
  Report Type: Spontaneous
  Country: US (occurrence: US)
  Receive Date: 20140414
  Receipt Date: 20140417
  Transmission Date: 20141212
  Serious: Yes (Hospitalization, Other)
  Sender: FDA-Public Use
  Company Number: US-BAXTER-2014BAX017736

PATIENT
  Sex: Male

DRUGS (3)
  1. DIANEAL PD2 [Suspect]
     Indication: RENAL FAILURE CHRONIC
     Route: 033
  2. DIANEAL PD2 [Suspect]
     Indication: RENAL FAILURE CHRONIC
     Route: 033
  3. LITHIUM [Suspect]
     Indication: PSYCHOTIC DISORDER

REACTIONS (4)
  - Heart rate irregular [Recovered/Resolved]
  - Toxicity to various agents [Recovered/Resolved]
  - Blood sodium increased [Unknown]
  - Dyspnoea [Recovered/Resolved]
